FAERS Safety Report 15770734 (Version 1)
Quarter: 2018Q4

REPORT INFORMATION
  Report Type: Spontaneous
  Country: DK (occurrence: DK)
  Receive Date: 20181228
  Receipt Date: 20181228
  Transmission Date: 20190205
  Serious: Yes (Congenital Anomaly, Other)
  Sender: FDA-Public Use
  Company Number: PHHY2018DK196399

PATIENT
  Sex: Female
  Weight: 4.45 kg

DRUGS (1)
  1. ACETYLSALICYLIC ACID [Suspect]
     Active Substance: ASPIRIN
     Indication: FOETAL EXPOSURE DURING PREGNANCY
     Route: 064

REACTIONS (10)
  - Eye disorder [Recovering/Resolving]
  - Foot deformity [Unknown]
  - Foetal exposure during pregnancy [Unknown]
  - Scoliosis [Unknown]
  - Hypotonia neonatal [Unknown]
  - Motor developmental delay [Unknown]
  - Intellectual disability [Unknown]
  - Gait disturbance [Unknown]
  - Ectropion [Recovering/Resolving]
  - Gross motor delay [Unknown]
